FAERS Safety Report 7674416-4 (Version None)
Quarter: 2011Q3

REPORT INFORMATION
  Report Type: 
  Country: None (occurrence: None)
  Receive Date: 20110810
  Receipt Date: 20110808
  Transmission Date: 20111222
  Serious: Yes (Other)
  Sender: FDA-Public Use
  Company Number: JP-PFIZER INC-2011120435

PATIENT
  Age: 49 Year
  Sex: Female
  Weight: 66 kg

DRUGS (10)
  1. ALPRAZOLAM [Concomitant]
     Dosage: UNK
  2. VARENICLINE TARTRATE [Suspect]
     Indication: NICOTINE DEPENDENCE
     Dosage: 0.5 MG, 1X/DAY
     Route: 048
     Dates: start: 20110412, end: 20110412
  3. TRAZODONE HYDROCHLORIDE [Concomitant]
     Dosage: UNK
  4. MAGNESIUM SULFATE [Concomitant]
     Dosage: UNK
  5. SEROQUEL [Concomitant]
     Dosage: UNK
  6. PAXIL [Concomitant]
     Dosage: UNK
  7. FLUNITRAZEPAM [Concomitant]
     Dosage: UNK
  8. SENNOSIDES [Concomitant]
     Dosage: UNK
  9. LIPITOR [Concomitant]
     Dosage: UNK
  10. DEPAKENE [Concomitant]
     Dosage: UNK

REACTIONS (5)
  - HYPERTENSION [None]
  - NAUSEA [None]
  - FACE OEDEMA [None]
  - HEADACHE [None]
  - DIZZINESS [None]
